FAERS Safety Report 5148333-8 (Version None)
Quarter: 2006Q4

REPORT INFORMATION
  Report Type: 
  Country: None (occurrence: None)
  Receive Date: 20061106
  Receipt Date: 20061024
  Transmission Date: 20070319
  Serious: Yes (Other)
  Sender: FDA-Public Use
  Company Number: 2006132271

PATIENT
  Age: 35 Year
  Sex: Female

DRUGS (3)
  1. FELDENE [Suspect]
     Indication: BACK PAIN
     Dosage: PARENTERAL
     Route: 051
  2. ACETAMINOPHEN [Concomitant]
  3. KETOPROFEN [Concomitant]

REACTIONS (1)
  - HYPOACUSIS [None]
